FAERS Safety Report 10878979 (Version 1)
Quarter: 2015Q1

REPORT INFORMATION
  Report Type: Spontaneous
  Country: SV (occurrence: SV)
  Receive Date: 20150302
  Receipt Date: 20150302
  Transmission Date: 20150721
  Serious: Yes (Other)
  Sender: FDA-Public Use
  Company Number: SV-BAYER-2015-027160

PATIENT

DRUGS (2)
  1. MIRENA [Suspect]
     Active Substance: LEVONORGESTREL
     Dosage: 20 MCG/24HR, CONT
     Route: 064
     Dates: start: 201408, end: 20141117
  2. MIRENA [Suspect]
     Active Substance: LEVONORGESTREL
     Dosage: 20 MCG/24HR, CONT
     Route: 064
     Dates: start: 201408, end: 20141117

REACTIONS (3)
  - Exposure during pregnancy [None]
  - Neonatal disorder [None]
  - Premature baby [None]

NARRATIVE: CASE EVENT DATE: 201408
